FAERS Safety Report 9316591 (Version 1)
Quarter: 2013Q2

REPORT INFORMATION
  Report Type: Spontaneous
  Country: US (occurrence: None)
  Receive Date: 20130528
  Receipt Date: 20130528
  Transmission Date: 20140414
  Serious: Yes (Other)
  Sender: FDA-Public Use
  Company Number: None

PATIENT
  Age: 45 Year
  Sex: Male
  Weight: 71.22 kg

DRUGS (1)
  1. DEBROX [Suspect]
     Indication: CERUMEN IMPACTION
     Dosage: OTHER
     Dates: start: 20130522, end: 20130522

REACTIONS (3)
  - Pain [None]
  - Hypoaesthesia oral [None]
  - Chemical injury [None]
